FAERS Safety Report 4687237-1 (Version None)
Quarter: 2005Q2

REPORT INFORMATION
  Report Type: 
  Country: None (occurrence: None)
  Receive Date: 20050606
  Receipt Date: 20050523
  Transmission Date: 20051028
  Serious: Yes (Hospitalization)
  Sender: FDA-Public Use
  Company Number: 2005078366

PATIENT
  Sex: Female

DRUGS (2)
  1. VIAGRA [Suspect]
     Indication: PULMONARY HYPERTENSION
     Dosage: 1 IN 1 D, ORAL
     Route: 048
     Dates: start: 20050401
  2. ALL OTHER THERAPEUTIC PRODUCTS (ALL OTHER THERAPEUTIC PRODUCTS) [Concomitant]

REACTIONS (5)
  - CARDIAC ARREST [None]
  - INFECTION [None]
  - PNEUMONIA [None]
  - SEPTIC SHOCK [None]
  - STEVENS-JOHNSON SYNDROME [None]
